FAERS Safety Report 12775387 (Version 2)
Quarter: 2016Q4

REPORT INFORMATION
  Report Type: Spontaneous
  Country: DE (occurrence: DE)
  Receive Date: 20160923
  Receipt Date: 20161014
  Transmission Date: 20170207
  Serious: Yes (Hospitalization, Other)
  Sender: FDA-Public Use
  Company Number: DE-PFIZER INC-2016434808

PATIENT
  Age: 77 Year
  Sex: Male

DRUGS (9)
  1. EFEROX [Concomitant]
     Active Substance: LEVOTHYROXINE SODIUM
     Dosage: 125 MG, UNK
     Route: 048
  2. RAMIPRIL COMP [Concomitant]
     Active Substance: HYDROCHLOROTHIAZIDE\RAMIPRIL
     Dosage: 5/12.5 MG
     Route: 048
  3. LERCANIDIPINE [Concomitant]
     Active Substance: LERCANIDIPINE
     Dosage: 10 MG, UNK
     Route: 048
  4. PANTOZOL [Concomitant]
     Active Substance: PANTOPRAZOLE SODIUM
     Dosage: 40 MG, UNK
     Route: 048
  5. JUNIK [Concomitant]
     Active Substance: BECLOMETHASONE DIPROPIONATE
     Dosage: 100 1-0-1-0 (200 MG DAILY)
     Route: 048
  6. ALFUZOSIN [Concomitant]
     Active Substance: ALFUZOSIN
     Dosage: 10 MG, UNK
     Route: 048
  7. ALLOPURINOL. [Concomitant]
     Active Substance: ALLOPURINOL
     Dosage: 300 MG, UNK
     Route: 048
  8. XARELTO [Concomitant]
     Active Substance: RIVAROXABAN
     Indication: DEEP VEIN THROMBOSIS
     Dosage: 30 MG, UNK
     Route: 048
  9. XALKORI [Suspect]
     Active Substance: CRIZOTINIB
     Indication: LUNG ADENOCARCINOMA
     Dosage: 250 MG, 2X/DAY
     Route: 048
     Dates: start: 20160728

REACTIONS (7)
  - Eyelid oedema [Recovered/Resolved]
  - Oedema peripheral [Recovered/Resolved]
  - Hypotension [Unknown]
  - Nausea [Unknown]
  - Cardiac failure [Recovered/Resolved]
  - Weight increased [Recovering/Resolving]
  - Fluid retention [Recovered/Resolved]

NARRATIVE: CASE EVENT DATE: 20160909
